FAERS Safety Report 23220045 (Version 1)
Quarter: 2023Q4

REPORT INFORMATION
  Report Type: Spontaneous
  Country: CN (occurrence: CN)
  Receive Date: 20231122
  Receipt Date: 20231122
  Transmission Date: 20240110
  Serious: Yes (Other)
  Sender: FDA-Public Use
  Company Number: CN-MLMSERVICE-20231106-4642937-1

PATIENT
  Age: 59 Year
  Sex: Male

DRUGS (5)
  1. GEMCITABINE HYDROCHLORIDE [Suspect]
     Active Substance: GEMCITABINE HYDROCHLORIDE
     Indication: Non-small cell lung cancer stage IIIA
     Dosage: 8.8 MG, DAYS 1 AND 8 , CYCLICAL
     Route: 065
     Dates: start: 20200929, end: 20201020
  2. PEMBROLIZUMAB [Suspect]
     Active Substance: PEMBROLIZUMAB
     Indication: Non-small cell lung cancer stage IIIA
     Dosage: 400 MG, DAYS 1 CYCLICAL
     Route: 065
     Dates: start: 20200929, end: 20201020
  3. CARBOPLATIN [Suspect]
     Active Substance: CARBOPLATIN
     Indication: Non-small cell lung cancer stage IIIA
     Dosage: 900 MG, DAYS 1 CYCLICAL
     Route: 065
     Dates: start: 20200929, end: 20201020
  4. MOXIFLOXACIN [Concomitant]
     Active Substance: MOXIFLOXACIN
     Indication: Lower respiratory tract infection
     Dosage: 0.4 G, DAILY
     Route: 065
     Dates: start: 20201107, end: 20201117
  5. ERTAPENEM [Concomitant]
     Active Substance: ERTAPENEM
     Indication: Lower respiratory tract infection
     Dosage: 1 G, DAILY
     Route: 065
     Dates: start: 20201107, end: 20201117

REACTIONS (2)
  - Hypothyroidism [Recovered/Resolved]
  - Hyperthyroidism [Recovered/Resolved]

NARRATIVE: CASE EVENT DATE: 20200101
